FAERS Safety Report 9974250 (Version 1)
Quarter: 2014Q1

REPORT INFORMATION
  Report Type: Report from Study
  Country: US (occurrence: US)
  Receive Date: 20140306
  Receipt Date: 20140306
  Transmission Date: 20141002
  Serious: No
  Sender: FDA-Public Use
  Company Number: US-ABBVIE-13P-163-1156881-00

PATIENT
  Sex: Female

DRUGS (3)
  1. HUMIRA [Suspect]
     Indication: CROHN^S DISEASE
     Dates: start: 20130913, end: 20130913
  2. HUMIRA [Suspect]
     Dates: start: 20130927, end: 20130927
  3. HUMIRA [Suspect]

REACTIONS (2)
  - Malaise [Unknown]
  - Nausea [Unknown]
